FAERS Safety Report 5278122-5 (Version None)
Quarter: 2007Q1

REPORT INFORMATION
  Report Type: 
  Country: None (occurrence: None)
  Receive Date: 20061213
  Receipt Date: 20040901
  Transmission Date: 20070707
  Serious: No
  Sender: FDA-Public Use
  Company Number: 2004UW18479

PATIENT
  Age: 69 Year
  Sex: Female

DRUGS (4)
  1. SEROQUEL [Suspect]
     Indication: AGITATION
     Dates: start: 20040701
  2. SEROQUEL [Suspect]
     Indication: BIPOLAR DISORDER
     Dates: start: 20040701
  3. SEROQUEL [Suspect]
     Indication: DEPRESSION
     Dates: start: 20040701
  4. SEROQUEL [Suspect]
     Indication: RESTLESSNESS
     Dates: start: 20040701

REACTIONS (1)
  - PARKINSONISM [None]
